FAERS Safety Report 9336525 (Version 1)
Quarter: 2013Q2

REPORT INFORMATION
  Report Type: Spontaneous
  Country: AU (occurrence: GB)
  Receive Date: 20130607
  Receipt Date: 20130607
  Transmission Date: 20140414
  Serious: Yes (Hospitalization, Other)
  Sender: FDA-Public Use
  Company Number: AU-BAYER-2013-068519

PATIENT
  Age: 10 Year
  Sex: Female

DRUGS (13)
  1. CIPROFLOXACIN [Suspect]
     Indication: ANTIBIOTIC PROPHYLAXIS
     Route: 048
  2. CLARITHROMYCIN [Suspect]
     Indication: MYCOBACTERIUM ABSCESSUS INFECTION
     Route: 048
  3. CLARITHROMYCIN [Suspect]
     Indication: ANTIBIOTIC PROPHYLAXIS
  4. RIFAMPICIN [Suspect]
     Indication: MYCOBACTERIUM ABSCESSUS INFECTION
     Route: 048
  5. ETHAMBUTOL [Suspect]
     Indication: MYCOBACTERIUM ABSCESSUS INFECTION
     Route: 048
  6. AMIKACIN [Suspect]
     Indication: ANTIBIOTIC PROPHYLAXIS
     Route: 055
  7. BASILIXIMAB [Concomitant]
     Indication: LUNG TRANSPLANT
  8. PREDNISOLONE [Concomitant]
     Indication: IMMUNOSUPPRESSANT DRUG THERAPY
  9. TACROLIMUS [Concomitant]
     Indication: IMMUNOSUPPRESSANT DRUG THERAPY
  10. MYCOPHENOLATE MOFETIL [Concomitant]
     Indication: IMMUNOSUPPRESSANT DRUG THERAPY
  11. CEFOXITIN [Concomitant]
     Indication: ANTIBIOTIC THERAPY
  12. CEFTAZIDIME [Concomitant]
     Indication: ANTIBIOTIC THERAPY
  13. TEICOPLANIN [Concomitant]
     Indication: ANTIBIOTIC THERAPY

REACTIONS (2)
  - Deafness neurosensory [None]
  - Pleural effusion [None]
